FAERS Safety Report 6999328-0 (Version None)
Quarter: 2010Q3

REPORT INFORMATION
  Report Type: 
  Country: None (occurrence: None)
  Receive Date: 20100920
  Receipt Date: 20100517
  Transmission Date: 20110219
  Serious: Yes (Other)
  Sender: FDA-Public Use
  Company Number: US-ASTRAZENECA-2008UW15967

PATIENT
  Age: 540 Month
  Sex: Female

DRUGS (10)
  1. SEROQUEL [Suspect]
     Indication: BIPOLAR DISORDER
     Route: 048
     Dates: start: 20060701, end: 20071001
  2. SEROQUEL [Suspect]
     Indication: OBSESSIVE-COMPULSIVE DISORDER
     Route: 048
     Dates: start: 20060701, end: 20071001
  3. SEROQUEL [Suspect]
     Route: 048
     Dates: start: 20080626
  4. SEROQUEL [Suspect]
     Route: 048
     Dates: start: 20080626
  5. SEROQUEL [Suspect]
     Route: 048
     Dates: start: 20080827
  6. SEROQUEL [Suspect]
     Route: 048
     Dates: start: 20080827
  7. LITHIUM CARBONATE [Concomitant]
     Route: 048
     Dates: start: 20080827
  8. TRILEPTAL [Concomitant]
     Route: 048
     Dates: start: 20080626
  9. TRILEPTAL [Concomitant]
     Route: 048
     Dates: start: 20080827
  10. CLONOPIN [Concomitant]
     Route: 048
     Dates: start: 20080827

REACTIONS (3)
  - DIABETES MELLITUS [None]
  - PANCREATITIS [None]
  - TYPE 1 DIABETES MELLITUS [None]
